FAERS Safety Report 6069294-3 (Version None)
Quarter: 2009Q1

REPORT INFORMATION
  Report Type: 
  Country: None (occurrence: None)
  Receive Date: 20090206
  Receipt Date: 20090129
  Transmission Date: 20090719
  Serious: Yes (Other)
  Sender: FDA-Public Use
  Company Number: US-PFIZER INC-2008099871

PATIENT
  Sex: Female
  Weight: 80.272 kg

DRUGS (6)
  1. NEURONTIN [Suspect]
     Dates: start: 20080101
  2. LYRICA [Suspect]
     Indication: NEURALGIA
     Dosage: 75 MG, 2X/DAY
     Route: 048
     Dates: start: 20060101, end: 20081122
  3. LYRICA [Suspect]
     Indication: BACK PAIN
     Dosage: 75 MG, 2X/DAY
     Route: 048
     Dates: start: 20080601, end: 20081101
  4. TEGRETOL [Concomitant]
     Dosage: 200 MG, 2X/DAY
  5. ABILIFY [Concomitant]
     Dosage: 5 MG, 1X/DAY
  6. ALPRAZOLAM [Concomitant]
     Dosage: 0.5 MG, AS NEEDED

REACTIONS (1)
  - FEELING ABNORMAL [None]
